FAERS Safety Report 15805774 (Version 8)
Quarter: 2020Q1

REPORT INFORMATION
  Report Type: Spontaneous
  Country: US (occurrence: US)
  Receive Date: 20190110
  Receipt Date: 20200310
  Transmission Date: 20200409
  Serious: Yes (Life-Threatening, Hospitalization, Disabling, Other)
  Sender: FDA-Public Use
  Company Number: US-009507513-1901USA000599

PATIENT
  Sex: Female

DRUGS (4)
  1. REBETOL [Suspect]
     Active Substance: RIBAVIRIN
     Indication: HEPATITIS C
     Dosage: UNK
     Route: 048
     Dates: start: 2011
  2. PEGINTRON [Suspect]
     Active Substance: PEGINTERFERON ALFA-2B
     Indication: HEPATITIS C
     Dosage: UNK
     Route: 058
     Dates: start: 2011
  3. ACYCLOVIR. [Concomitant]
     Active Substance: ACYCLOVIR
     Indication: HERPES VIRUS INFECTION
     Dosage: UNK
  4. CYMBALTA [Concomitant]
     Active Substance: DULOXETINE HYDROCHLORIDE
     Dosage: UNK

REACTIONS (35)
  - Pain in extremity [Not Recovered/Not Resolved]
  - Immunodeficiency common variable [Not Recovered/Not Resolved]
  - Herpes simplex [Not Recovered/Not Resolved]
  - Vein rupture [Unknown]
  - Chronic fatigue syndrome [Unknown]
  - Cytomegalovirus infection [Unknown]
  - Nausea [Not Recovered/Not Resolved]
  - Dysgraphia [Unknown]
  - Alopecia [Unknown]
  - Adverse event [Unknown]
  - Bone density decreased [Not Recovered/Not Resolved]
  - White blood cell count decreased [Not Recovered/Not Resolved]
  - Migraine [Not Recovered/Not Resolved]
  - Executive dysfunction [Unknown]
  - Condition aggravated [Unknown]
  - Hand deformity [Unknown]
  - Nosocomial infection [Not Recovered/Not Resolved]
  - Dementia [Not Recovered/Not Resolved]
  - Platelet count decreased [Not Recovered/Not Resolved]
  - Fibromyalgia [Unknown]
  - Limb operation [Not Recovered/Not Resolved]
  - Pulmonary mass [Not Recovered/Not Resolved]
  - Bronchitis [Not Recovered/Not Resolved]
  - Quality of life decreased [Not Recovered/Not Resolved]
  - Sjogren^s syndrome [Not Recovered/Not Resolved]
  - Bone pain [Not Recovered/Not Resolved]
  - Myalgia [Not Recovered/Not Resolved]
  - Vomiting [Not Recovered/Not Resolved]
  - Helicobacter infection [Unknown]
  - Epstein-Barr virus infection [Unknown]
  - Gait disturbance [Not Recovered/Not Resolved]
  - Pneumonia [Not Recovered/Not Resolved]
  - B-lymphocyte abnormalities [Not Recovered/Not Resolved]
  - Loss of libido [Not Recovered/Not Resolved]
  - Depression [Not Recovered/Not Resolved]

NARRATIVE: CASE EVENT DATE: 2011
